FAERS Safety Report 8798382 (Version 1)
Quarter: 2012Q4

REPORT INFORMATION
  Report Type: 
  Country: US (occurrence: US)
  Receive Date: 20120920
  Receipt Date: 20120920
  Transmission Date: 20130627
  Serious: No
  Sender: FDA-Public Use
  Company Number: US-B.I. PHARMACEUTICALS,INC./RIDGEFIELD-2012-BP-22374BP

PATIENT
  Sex: Female

DRUGS (6)
  1. ZANTAC 150 (RANITIDINE HYDROCHLORIDE) [Suspect]
     Indication: ORAL DISCOMFORT
     Route: 048
     Dates: start: 201206
  2. ZANTAC 150 (RANITIDINE HYDROCHLORIDE) [Suspect]
     Indication: BURN OESOPHAGEAL
  3. ASA [Concomitant]
     Dosage: 81 mg
     Route: 048
  4. VITAMIN D3 [Concomitant]
     Indication: SUPPLEMENTATION THERAPY
  5. VITAMIN B12 [Concomitant]
     Indication: SUPPLEMENTATION THERAPY
  6. CORGARD [Concomitant]

REACTIONS (1)
  - Feeling abnormal [Not Recovered/Not Resolved]
